FAERS Safety Report 8469384-1 (Version None)
Quarter: 2012Q2

REPORT INFORMATION
  Report Type: 
  Country: None (occurrence: None)
  Receive Date: 20120626
  Receipt Date: 20120620
  Transmission Date: 20120825
  Serious: Yes (Hospitalization)
  Sender: FDA-Public Use
  Company Number: FR-PFIZER INC-2009314664

PATIENT
  Age: 37 Year
  Sex: Female

DRUGS (10)
  1. PROZAC [Concomitant]
     Dosage: UNK
  2. POLARAMINE [Concomitant]
     Dosage: UNK
  3. INTERFERON [Concomitant]
     Dosage: UNK
  4. COPAXONE [Concomitant]
     Dosage: UNK
  5. CLONAZEPAM [Concomitant]
     Dosage: UNK
  6. LEXOMIL [Concomitant]
     Dosage: UNK
  7. SOLU-MEDROL [Suspect]
     Dosage: UNK
     Route: 042
     Dates: start: 20050101
  8. IMURAN [Concomitant]
     Dosage: UNK
  9. ATARAX [Concomitant]
     Dosage: UNK
  10. ZOLPIDEM TARTRATE [Concomitant]
     Dosage: UNK

REACTIONS (3)
  - ABDOMINAL PAIN [None]
  - DYSPNOEA [None]
  - PRURITUS [None]
